FAERS Safety Report 6545304-1 (Version None)
Quarter: 2010Q1

REPORT INFORMATION
  Report Type: 
  Country: None (occurrence: None)
  Receive Date: 20100121
  Receipt Date: 20100114
  Transmission Date: 20100710
  Serious: Yes (Hospitalization)
  Sender: FDA-Public Use
  Company Number: DE-AMGEN-UK378114

PATIENT
  Sex: Female
  Weight: 64.4 kg

DRUGS (5)
  1. NEULASTA [Suspect]
     Indication: CHEMOTHERAPY
  2. DOCETAXEL [Suspect]
     Route: 041
     Dates: start: 20090914
  3. EPIRUBICIN [Suspect]
     Route: 041
     Dates: start: 20090914
  4. CYCLOPHOSPHAMIDE [Suspect]
     Route: 041
     Dates: start: 20090914
  5. ATACAND [Concomitant]

REACTIONS (3)
  - COUGH [None]
  - DYSPNOEA [None]
  - INFECTION [None]
